FAERS Safety Report 6190024-9 (Version None)
Quarter: 2009Q2

REPORT INFORMATION
  Report Type: 
  Country: None (occurrence: None)
  Receive Date: 20090514
  Receipt Date: 20090505
  Transmission Date: 20091009
  Serious: Yes (Hospitalization)
  Sender: FDA-Public Use
  Company Number: US-AVENTIS-200913919US

PATIENT
  Sex: Female
  Weight: 70.3 kg

DRUGS (3)
  1. KETEK [Suspect]
     Indication: SINUSITIS
     Route: 048
     Dates: start: 20060718, end: 20060718
  2. KETEK [Suspect]
     Indication: PHARYNGITIS
     Route: 048
     Dates: start: 20060718, end: 20060718
  3. AMOXICILLIN [Concomitant]
     Route: 048
     Dates: start: 20060712, end: 20060718

REACTIONS (15)
  - ABDOMINAL DISCOMFORT [None]
  - ABDOMINAL DISTENSION [None]
  - ALANINE AMINOTRANSFERASE INCREASED [None]
  - ASPARTATE AMINOTRANSFERASE INCREASED [None]
  - BLOOD BILIRUBIN INCREASED [None]
  - BLOOD BILIRUBIN UNCONJUGATED INCREASED [None]
  - HEPATIC ENZYME INCREASED [None]
  - HYPERSENSITIVITY [None]
  - LIP OEDEMA [None]
  - LOCAL SWELLING [None]
  - PAIN [None]
  - PELVIC INFLAMMATORY DISEASE [None]
  - PRURITUS [None]
  - SWELLING [None]
  - VAGINAL SWELLING [None]
